FAERS Safety Report 4452950-8 (Version None)
Quarter: 2004Q3

REPORT INFORMATION
  Report Type: 
  Country: None (occurrence: None)
  Receive Date: 20040916
  Receipt Date: 20040901
  Transmission Date: 20050211
  Serious: Yes (Hospitalization, Other)
  Sender: FDA-Public Use
  Company Number: USA-2003-0006727

PATIENT
  Age: 40 Year
  Sex: Female
  Weight: 82.5 kg

DRUGS (9)
  1. OXYCONTIN [Suspect]
     Indication: PAIN
     Dosage: 20 MG
  2. VIOXX [Concomitant]
  3. NEURONTIN [Concomitant]
  4. ELAVIL [Concomitant]
  5. TRILEPTAL [Concomitant]
  6. LORCET-HD [Concomitant]
  7. ULTRAM [Concomitant]
  8. COMBIVENT (IRPATROPIUM BROMIDE, SALBUTAMOL SULFATE) [Concomitant]
  9. TYLENOL PM (DIPHENHYDRAMINE) [Concomitant]

REACTIONS (53)
  - ADJUSTMENT DISORDER [None]
  - ANXIETY [None]
  - ARTHRALGIA [None]
  - ASTHENIA [None]
  - ASTHMA [None]
  - BRONCHITIS [None]
  - CELLULITIS [None]
  - CHEST DISCOMFORT [None]
  - CHEST WALL PAIN [None]
  - CONDITION AGGRAVATED [None]
  - COSTOCHONDRITIS [None]
  - DECREASED APPETITE [None]
  - DENTAL CARIES [None]
  - DEPRESSION [None]
  - DIZZINESS [None]
  - DRUG DEPENDENCE [None]
  - DYSPHORIA [None]
  - DYSPNOEA [None]
  - DYSURIA [None]
  - EMOTIONAL DISTRESS [None]
  - ERYTHEMA [None]
  - FEAR [None]
  - HAND FRACTURE [None]
  - HOMICIDAL IDEATION [None]
  - HYPERHIDROSIS [None]
  - INADEQUATE ANALGESIA [None]
  - INSOMNIA [None]
  - LIBIDO DECREASED [None]
  - LIMB INJURY [None]
  - LOCALISED INFECTION [None]
  - NAUSEA [None]
  - NECK PAIN [None]
  - NERVOUSNESS [None]
  - NICOTINE DEPENDENCE [None]
  - OEDEMA PERIPHERAL [None]
  - OPEN WOUND [None]
  - OSTEOMYELITIS [None]
  - PAIN [None]
  - PRODUCTIVE COUGH [None]
  - RESTLESSNESS [None]
  - SENSORY LOSS [None]
  - SKIN LACERATION [None]
  - SKIN ULCER [None]
  - SLEEP DISORDER [None]
  - SOCIAL AVOIDANT BEHAVIOUR [None]
  - SUICIDAL IDEATION [None]
  - SWELLING FACE [None]
  - TEARFULNESS [None]
  - VISION BLURRED [None]
  - WEIGHT DECREASED [None]
  - WHEEZING [None]
  - WOUND COMPLICATION [None]
  - WOUND HAEMORRHAGE [None]
